FAERS Safety Report 10055762 (Version 1)
Quarter: 2014Q2

REPORT INFORMATION
  Report Type: Report from Study
  Country: KR (occurrence: KR)
  Receive Date: 20140403
  Receipt Date: 20140403
  Transmission Date: 20141212
  Serious: Yes (Hospitalization)
  Sender: FDA-Public Use
  Company Number: KR-ROCHE-1374657

PATIENT
  Sex: Female

DRUGS (7)
  1. TOCILIZUMAB [Suspect]
     Indication: RHEUMATOID ARTHRITIS
     Route: 042
     Dates: start: 20131021
  2. TOCILIZUMAB [Suspect]
     Route: 042
     Dates: start: 20131119
  3. TOCILIZUMAB [Suspect]
     Route: 042
     Dates: start: 20131217
  4. TOCILIZUMAB [Suspect]
     Route: 042
     Dates: start: 20140114
  5. TOCILIZUMAB [Suspect]
     Route: 042
     Dates: start: 20130212
  6. METHOTREXATE [Concomitant]
     Indication: RHEUMATOID ARTHRITIS
     Dosage: 7.5MG/WK
     Route: 065
     Dates: start: 20120507
  7. FOLIC ACID [Concomitant]
     Indication: RHEUMATOID ARTHRITIS
     Route: 065
     Dates: start: 20140114

REACTIONS (1)
  - Generalised oedema [Recovering/Resolving]
